FAERS Safety Report 6713973-9 (Version None)
Quarter: 2010Q2

REPORT INFORMATION
  Report Type: 
  Country: None (occurrence: None)
  Receive Date: 20100403
  Receipt Date: 20100419
  Transmission Date: 20101027
  Serious: Yes (Other)
  Sender: FDA-Public Use
  Company Number: 2010AP000811

PATIENT
  Age: 62 Year
  Sex: Female

DRUGS (4)
  1. ALENDRONATE SODIUM [Suspect]
     Indication: OSTEOPOROSIS
     Dosage: 70 MG;PO
     Route: 048
     Dates: start: 20100328, end: 20100328
  2. ANASTROZOLE [Concomitant]
  3. CALCIUM CARBONATE [Concomitant]
  4. COLECALCIFEROL (COLECALCIFEROL) [Concomitant]

REACTIONS (2)
  - LIP SWELLING [None]
  - SWOLLEN TONGUE [None]
